FAERS Safety Report 19208345 (Version 3)
Quarter: 2021Q3

REPORT INFORMATION
  Report Type: Report from Study
  Country: None (occurrence: CO)
  Receive Date: 20210504
  Receipt Date: 20210726
  Transmission Date: 20211014
  Serious: Yes (Hospitalization)
  Sender: FDA-Public Use
  Company Number: CO-ABBVIE-21K-036-3886679-00

PATIENT
  Age: 25 Year
  Sex: Male
  Weight: 62 kg

DRUGS (2)
  1. HUMIRA [Suspect]
     Active Substance: ADALIMUMAB
     Indication: PSORIASIS
     Route: 058
     Dates: start: 20150421
  2. HUMIRA [Suspect]
     Active Substance: ADALIMUMAB
     Indication: PSORIASIS
     Dosage: AC
     Route: 058
     Dates: end: 20210415

REACTIONS (3)
  - Bacterial infection [Recovering/Resolving]
  - Weight decreased [Recovering/Resolving]
  - Psoriasis [Recovered/Resolved]

NARRATIVE: CASE EVENT DATE: 202104
